FAERS Safety Report 12784695 (Version 1)
Quarter: 2016Q3

REPORT INFORMATION
  Report Type: Spontaneous
  Country: US (occurrence: US)
  Receive Date: 20160927
  Receipt Date: 20160927
  Transmission Date: 20161109
  Serious: Yes (Hospitalization)
  Sender: FDA-Public Use
  Company Number: US-SA-2016SA177406

PATIENT
  Age: 56 Year
  Sex: Male

DRUGS (5)
  1. PRALUENT [Suspect]
     Active Substance: ALIROCUMAB
     Indication: HYPERLIPIDAEMIA
     Route: 058
     Dates: start: 20160329
  2. PRALUENT [Suspect]
     Active Substance: ALIROCUMAB
     Indication: ARTERIOSCLEROSIS CORONARY ARTERY
     Route: 058
     Dates: start: 20160329
  3. PRALUENT [Suspect]
     Active Substance: ALIROCUMAB
     Indication: TYPE 2 DIABETES MELLITUS
     Route: 058
     Dates: start: 20160329
  4. ALIROCUMAB PREFILLED PEN [Concomitant]
     Active Substance: ALIROCUMAB
     Dates: start: 20160329
  5. PRALUENT [Suspect]
     Active Substance: ALIROCUMAB
     Indication: ANGINA PECTORIS
     Route: 058
     Dates: start: 20160329

REACTIONS (1)
  - Leg amputation [Unknown]
